FAERS Safety Report 14155400 (Version 1)
Quarter: 2017Q4

REPORT INFORMATION
  Report Type: Spontaneous
  Country: HK (occurrence: HK)
  Receive Date: 20171103
  Receipt Date: 20171103
  Transmission Date: 20180321
  Serious: Yes (Hospitalization)
  Sender: FDA-Public Use
  Company Number: HK-ROCHE-2017845

PATIENT
  Age: 93 Year
  Sex: Male

DRUGS (2)
  1. LUCENTIS [Suspect]
     Active Substance: RANIBIZUMAB
     Indication: MACULOPATHY
     Dosage: UNK
     Route: 031
     Dates: start: 20120918, end: 20130319
  2. EYLEA [Suspect]
     Active Substance: AFLIBERCEPT
     Indication: MACULOPATHY
     Dosage: UNK
     Route: 031
     Dates: start: 20140106, end: 20170816

REACTIONS (1)
  - Pyoderma gangrenosum [Unknown]

NARRATIVE: CASE EVENT DATE: 20170326
